FAERS Safety Report 23391478 (Version 2)
Quarter: 2024Q2

REPORT INFORMATION
  Report Type: Spontaneous
  Country: US (occurrence: US)
  Receive Date: 20240111
  Receipt Date: 20240425
  Transmission Date: 20240716
  Serious: No
  Sender: FDA-Public Use
  Company Number: US-SA-SAC20240108000117

PATIENT
  Age: 42 Year
  Sex: Male

DRUGS (1)
  1. DUPIXENT [Suspect]
     Active Substance: DUPILUMAB
     Indication: Dermatitis atopic
     Dosage: 300 MG, QOW
     Route: 058

REACTIONS (9)
  - Eye infection [Unknown]
  - Joint stiffness [Unknown]
  - Tendon pain [Unknown]
  - Pain in extremity [Unknown]
  - Condition aggravated [Unknown]
  - Conjunctivitis [Unknown]
  - Product dose omission issue [Unknown]
  - Arthralgia [Unknown]
  - Product dose omission in error [Unknown]
